FAERS Safety Report 21237945 (Version 1)
Quarter: 2022Q3

REPORT INFORMATION
  Report Type: Spontaneous
  Country: US (occurrence: US)
  Receive Date: 20220822
  Receipt Date: 20220822
  Transmission Date: 20221027
  Serious: Yes (Other)
  Sender: FDA-Public Use
  Company Number: US-BAYER-2022A113004

PATIENT
  Age: 74 Year
  Sex: Female

DRUGS (7)
  1. REGORAFENIB [Suspect]
     Active Substance: REGORAFENIB
     Indication: Ewing^s sarcoma recurrent
     Dosage: UNK
     Dates: start: 201912
  2. REGORAFENIB [Suspect]
     Active Substance: REGORAFENIB
     Indication: Ewing^s sarcoma recurrent
     Dosage: UNK
  3. REGORAFENIB [Suspect]
     Active Substance: REGORAFENIB
     Indication: Ewing^s sarcoma recurrent
     Dosage: UNK
  4. REGORAFENIB [Suspect]
     Active Substance: REGORAFENIB
     Indication: Ewing^s sarcoma recurrent
     Dosage: UNK
  5. REGORAFENIB [Suspect]
     Active Substance: REGORAFENIB
     Indication: Ewing^s sarcoma recurrent
     Dosage: UNK
  6. REGORAFENIB [Suspect]
     Active Substance: REGORAFENIB
     Indication: Ewing^s sarcoma recurrent
     Dosage: UNK
  7. REGORAFENIB [Suspect]
     Active Substance: REGORAFENIB
     Indication: Ewing^s sarcoma recurrent
     Dosage: UNK
     Dates: end: 202006

REACTIONS (3)
  - Thrombocytopenia [None]
  - Hyperbilirubinaemia [None]
  - Off label use [None]
